FAERS Safety Report 16400334 (Version 1)
Quarter: 2019Q2

REPORT INFORMATION
  Report Type: Spontaneous
  Country: CN (occurrence: CN)
  Receive Date: 20190606
  Receipt Date: 20190606
  Transmission Date: 20190711
  Serious: Yes (Other)
  Sender: FDA-Public Use
  Company Number: CN-VALIDUS PHARMACEUTICALS LLC-CN-2019VAL000268

PATIENT

DRUGS (2)
  1. ROCALTROL [Suspect]
     Active Substance: CALCITRIOL
     Indication: HYPERPARATHYROIDISM
  2. ROCALTROL [Suspect]
     Active Substance: CALCITRIOL
     Indication: CHRONIC KIDNEY DISEASE
     Dosage: UNK
     Route: 065

REACTIONS (10)
  - Bone pain [Recovering/Resolving]
  - Bone density decreased [Unknown]
  - Femoral neck fracture [Unknown]
  - Pleural effusion [Unknown]
  - Atelectasis [Unknown]
  - Peripheral swelling [Unknown]
  - Ill-defined disorder [Unknown]
  - Pericardial effusion [Unknown]
  - Anaemia [Unknown]
  - Pulmonary calcification [Unknown]

NARRATIVE: CASE EVENT DATE: 20150513
